FAERS Safety Report 5033968-3 (Version None)
Quarter: 2006Q2

REPORT INFORMATION
  Report Type: 
  Country: None (occurrence: None)
  Receive Date: 20060626
  Receipt Date: 20060612
  Transmission Date: 20061013
  Serious: Yes (Hospitalization)
  Sender: FDA-Public Use
  Company Number: JP-BRACCO-BEI-006334

PATIENT
  Age: 31 Year
  Sex: Female
  Weight: 58 kg

DRUGS (2)
  1. PROHANCE                           /01180901/ [Suspect]
     Indication: INDURATION
     Route: 042
     Dates: start: 20060609, end: 20060609
  2. PROHANCE                           /01180901/ [Suspect]
     Route: 042
     Dates: start: 20060609, end: 20060609

REACTIONS (2)
  - ANAPHYLACTIC SHOCK [None]
  - ELECTROCARDIOGRAM QT CORRECTED INTERVAL PROLONGED [None]
